FAERS Safety Report 4944000-1 (Version None)
Quarter: 2006Q1

REPORT INFORMATION
  Report Type: 
  Country: None (occurrence: None)
  Receive Date: 20060313
  Receipt Date: 20060313
  Transmission Date: 20060701
  Serious: Yes (Other)
  Sender: FDA-Public Use
  Company Number: None

PATIENT
  Sex: Female
  Weight: 36.9 kg

DRUGS (2)
  1. CISPLATIN [Suspect]
     Indication: SQUAMOUS CELL CARCINOMA OF THE CERVIX
     Dosage: 68 MG
     Dates: start: 20060209
  2. NAVELBINE [Suspect]
     Dosage: 80 MG
     Dates: start: 20060209, end: 20060216

REACTIONS (1)
  - NEUTROPHIL COUNT ABNORMAL [None]
